FAERS Safety Report 8602994-7 (Version None)
Quarter: 2012Q3

REPORT INFORMATION
  Report Type: 
  Country: None (occurrence: None)
  Receive Date: 20120817
  Receipt Date: 20120424
  Transmission Date: 20120928
  Serious: No
  Sender: FDA-Public Use
  Company Number: US-GLAXOSMITHKLINE-A0975803A

PATIENT
  Age: 79 Year
  Sex: Male

DRUGS (4)
  1. LEUKINE [Concomitant]
  2. THALOMID [Concomitant]
  3. VOTRIENT [Suspect]
     Indication: MALIGNANT URINARY TRACT NEOPLASM
     Dosage: 800MG PER DAY
     Route: 048
     Dates: start: 20120202, end: 20120308
  4. REVLIMID [Concomitant]

REACTIONS (3)
  - FATIGUE [None]
  - DECREASED APPETITE [None]
  - HEADACHE [None]
